FAERS Safety Report 22317221 (Version 1)
Quarter: 2023Q2

REPORT INFORMATION
  Report Type: Spontaneous
  Country: US (occurrence: US)
  Receive Date: 20230515
  Receipt Date: 20230515
  Transmission Date: 20230722
  Serious: Yes (Other)
  Sender: FDA-Public Use
  Company Number: US-CELLTRION INC.-2023US009850

PATIENT

DRUGS (1)
  1. TRUXIMA [Suspect]
     Active Substance: RITUXIMAB-ABBS
     Indication: Dermatomyositis
     Dosage: 1000 MILLIGRAM ON DAY 1 AND DAY 15 EVERY 6 MONTHS
     Dates: start: 202112

REACTIONS (2)
  - Dermatomyositis [Unknown]
  - Off label use [Unknown]
